FAERS Safety Report 10521982 (Version 1)
Quarter: 2014Q4

REPORT INFORMATION
  Report Type: Spontaneous
  Country: US (occurrence: None)
  Receive Date: 20141014
  Receipt Date: 20141014
  Transmission Date: 20150528
  Serious: No
  Sender: FDA-Public Use
  Company Number: None

PATIENT
  Age: 77 Year
  Sex: Female

DRUGS (10)
  1. PRAVASTATIN (PRAVACHOL) [Concomitant]
  2. OMEPRAZOLE MAGNESIUM. [Concomitant]
     Active Substance: OMEPRAZOLE MAGNESIUM
  3. SODIUM BICARBONATE (SODIUM BIARBONATE, ANTACID) [Concomitant]
  4. ACETAMINOPHEN (TYLENOL EXTRA STRENGTH) [Concomitant]
  5. VITAMIN B COMPLEX-VIT C-FA (NEPHRO-VITE/FULL SPECTRUM) [Concomitant]
  6. REVLIMID [Suspect]
     Active Substance: LENALIDOMIDE
     Indication: DIFFUSE LARGE B-CELL LYMPHOMA
     Dosage: X21D/28D
     Route: 048
     Dates: start: 20140915
  7. PREDNISONE (DELTASONE) [Concomitant]
  8. LIDOCAINE (XYLOCAINE JELLY) [Concomitant]
  9. TIMOLOL MALEATE (TIMOPTIC) [Concomitant]
  10. LATANOPROST (XALATAN) [Concomitant]

REACTIONS (1)
  - Constipation [None]

NARRATIVE: CASE EVENT DATE: 20141008
